FAERS Safety Report 9250346 (Version 1)
Quarter: 2013Q1

REPORT INFORMATION
  Report Type: Spontaneous
  Country: US (occurrence: None)
  Receive Date: 20130305
  Receipt Date: 20130305
  Transmission Date: 20140127
  Serious: Yes (Other)
  Sender: FDA-Public Use
  Company Number: 163-21880-12053007

PATIENT
  Age: 67 Year
  Sex: Female

DRUGS (3)
  1. REVLIMID [Suspect]
     Indication: PLASMA CELL MYELOMA
     Dosage: 25 MG, QD X 21 DAYS/OFF 7 DAYS, PO
     Route: 048
     Dates: start: 20120102
  2. CIPRO [Suspect]
  3. COUMADIN (WARFARIN SODIUM) [Concomitant]

REACTIONS (4)
  - Platelet count decreased [None]
  - Pruritus [None]
  - Cellulitis [None]
  - Diarrhoea [None]
